FAERS Safety Report 13527035 (Version 2)
Quarter: 2017Q2

REPORT INFORMATION
  Report Type: Spontaneous
  Country: SE (occurrence: SE)
  Receive Date: 20170509
  Receipt Date: 20170529
  Transmission Date: 20170830
  Serious: Yes (Hospitalization)
  Sender: FDA-Public Use
  Company Number: SE-TEVA-764299ACC

PATIENT
  Age: 35 Year
  Sex: Male

DRUGS (12)
  1. THERALEN [Concomitant]
     Active Substance: TRIMEPRAZINE
  2. ERGENYL [Concomitant]
     Active Substance: VALPROIC ACID
  3. NASONEX [Concomitant]
     Active Substance: MOMETASONE FUROATE
  4. STESOLID ACTAVIS [Suspect]
     Active Substance: DIAZEPAM
     Route: 048
     Dates: start: 20141226, end: 20141226
  5. SILDENAFIL ACCORD [Concomitant]
  6. BRICANYL [Concomitant]
     Active Substance: TERBUTALINE SULFATE
  7. OMEPRAZOL BLUEFISH [Concomitant]
  8. QUETIAPIN ACTAVIS [Suspect]
     Active Substance: QUETIAPINE
     Dosage: UNKNOWN DOSE
     Route: 048
     Dates: start: 20141226, end: 20141226
  9. KLOMIPRAMIN MYLAN [Concomitant]
  10. ALVEDON [Concomitant]
     Active Substance: ACETAMINOPHEN
  11. NITRAZEPAM RECIP [Suspect]
     Active Substance: NITRAZEPAM
     Route: 048
     Dates: start: 20141226, end: 20141226
  12. IMOVANE [Suspect]
     Active Substance: ZOPICLONE
     Route: 048
     Dates: start: 20141226, end: 20141226

REACTIONS (2)
  - Toxicity to various agents [Recovered/Resolved]
  - Suicide attempt [Recovered/Resolved]

NARRATIVE: CASE EVENT DATE: 20141226
